FAERS Safety Report 25011551 (Version 3)
Quarter: 2025Q1

REPORT INFORMATION
  Report Type: Report from Study
  Country: GB (occurrence: GB)
  Receive Date: 20250226
  Receipt Date: 20250326
  Transmission Date: 20250408
  Serious: Yes (Hospitalization, Other)
  Sender: UCB
  Company Number: GB-UCBSA-2025010055

PATIENT
  Age: 66 Year
  Sex: Male

DRUGS (1)
  1. CERTOLIZUMAB PEGOL [Suspect]
     Active Substance: CERTOLIZUMAB PEGOL
     Indication: Psoriatic arthropathy
     Dosage: 200 MILLIGRAM, EV 2 WEEKS(QOW)
     Route: 058

REACTIONS (7)
  - Vertigo [Recovered/Resolved]
  - Head injury [Recovering/Resolving]
  - Encephalitis [Recovered/Resolved]
  - Coordination abnormal [Recovering/Resolving]
  - Product dose omission issue [Unknown]
  - Product availability issue [Unknown]
  - Product prescribing issue [Unknown]

NARRATIVE: CASE EVENT DATE: 20250310
